APPROVED DRUG PRODUCT: TOLVAPTAN
Active Ingredient: TOLVAPTAN
Strength: 15MG
Dosage Form/Route: TABLET;ORAL
Application: A207605 | Product #002 | TE Code: AB1
Applicant: APOTEX INC
Approved: Sep 6, 2022 | RLD: No | RS: No | Type: RX